FAERS Safety Report 15471372 (Version 2)
Quarter: 2018Q4

REPORT INFORMATION
  Report Type: Spontaneous
  Country: US (occurrence: US)
  Receive Date: 20181007
  Receipt Date: 20181126
  Transmission Date: 20190205
  Serious: No
  Sender: FDA-Public Use
  Company Number: US-BIOGEN-2018BI00627400

PATIENT
  Age: 25 Year
  Sex: Female

DRUGS (1)
  1. TYSABRI [Suspect]
     Active Substance: NATALIZUMAB
     Indication: MULTIPLE SCLEROSIS
     Route: 065
     Dates: start: 20180209, end: 20180316

REACTIONS (4)
  - Throat tightness [Unknown]
  - Hypersensitivity [Unknown]
  - Hypoaesthesia [Unknown]
  - Chest discomfort [Unknown]

NARRATIVE: CASE EVENT DATE: 20180323
